FAERS Safety Report 8313311-4 (Version None)
Quarter: 2012Q2

REPORT INFORMATION
  Report Type: 
  Country: None (occurrence: None)
  Receive Date: 20120426
  Receipt Date: 20120417
  Transmission Date: 20120825
  Serious: Yes (Other)
  Sender: FDA-Public Use
  Company Number: PHHY2012BR032486

PATIENT
  Sex: Female

DRUGS (2)
  1. EXELON [Suspect]
     Indication: MEMORY IMPAIRMENT
     Dosage: 4.6 MG\24H (9 MG\5CM2)
     Route: 062
     Dates: start: 20120301
  2. EXELON [Suspect]
     Route: 062

REACTIONS (5)
  - HYPERSENSITIVITY [None]
  - FALL [None]
  - INTERVERTEBRAL DISC COMPRESSION [None]
  - ERYTHEMA [None]
  - PRURITUS [None]
